FAERS Safety Report 15331726 (Version 2)
Quarter: 2018Q3

REPORT INFORMATION
  Report Type: Spontaneous
  Country: ZA (occurrence: ZA)
  Receive Date: 20180829
  Receipt Date: 20180906
  Transmission Date: 20181010
  Serious: Yes (Hospitalization, Other)
  Sender: FDA-Public Use
  Company Number: ZA-NOVOPROD-618114

PATIENT
  Age: 70 Year
  Sex: Female

DRUGS (12)
  1. ZYTOMIL [Concomitant]
     Active Substance: ESCITALOPRAM OXALATE
     Dosage: UNK
     Route: 065
  2. ECOTRIN [Concomitant]
     Active Substance: ASPIRIN
     Dosage: UNK
     Route: 065
  3. GLUCOPHAGE [Concomitant]
     Active Substance: METFORMIN HYDROCHLORIDE
     Dosage: UNK
     Route: 065
  4. ELTROXIN [Concomitant]
     Active Substance: LEVOTHYROXINE
     Dosage: UNK
     Route: 065
  5. TREPILINE                          /00002201/ [Concomitant]
     Active Substance: AMITRIPTYLINE
     Dosage: UNK
     Route: 065
  6. DORMONOCT [Concomitant]
     Active Substance: LOPRAZOLAM
     Dosage: UNK
     Route: 065
  7. ADCO?ATENOLOL [Concomitant]
     Active Substance: ATENOLOL
     Dosage: UNK
     Route: 065
  8. PAX                                /00017001/ [Concomitant]
     Active Substance: DIAZEPAM
     Dosage: UNK
     Route: 065
  9. ESTROFEM [Suspect]
     Active Substance: ESTRADIOL CYPIONATE
     Dosage: 2 MG
     Route: 048
  10. ESTROFEM [Suspect]
     Active Substance: ESTRADIOL CYPIONATE
     Indication: HORMONE REPLACEMENT THERAPY
     Dosage: SINCE 25 YEARS
     Route: 048
  11. XALACOM [Concomitant]
     Active Substance: LATANOPROST\TIMOLOL MALEATE
     Dosage: UNK
     Route: 065
  12. PURICOS [Concomitant]
     Active Substance: ALLOPURINOL
     Dosage: UNK
     Route: 065

REACTIONS (5)
  - Bone disorder [Unknown]
  - Road traffic accident [Unknown]
  - Pain [Unknown]
  - Spinal column injury [Unknown]
  - Neck injury [Unknown]
